FAERS Safety Report 6505173-2 (Version None)
Quarter: 2009Q4

REPORT INFORMATION
  Report Type: 
  Country: None (occurrence: None)
  Receive Date: 20091218
  Receipt Date: 20091214
  Transmission Date: 20100525
  Serious: Yes (Death)
  Sender: FDA-Public Use
  Company Number: PHHY2009GB28981

PATIENT
  Sex: Female

DRUGS (11)
  1. CLOZAPINE [Suspect]
     Indication: PSYCHOTIC DISORDER
     Dosage: 500 MG/DAY
  2. BECLOMETASONE [Concomitant]
  3. CHLORPROMAZINE [Concomitant]
     Dosage: 100 MG, QD
  4. DANAZOL [Concomitant]
     Dosage: 200 MG, BID
  5. DICLOFENAC [Concomitant]
     Dosage: 50 MG, TID
     Route: 048
  6. FLUOXETINE [Concomitant]
     Dosage: 60 MG, QD
  7. LANSOPRAZOLE [Concomitant]
     Dosage: 30 MG, QD
  8. ORPHENADRINE CITRATE [Concomitant]
     Dosage: 50 MG, BID
     Route: 048
  9. ALBUTEROL [Concomitant]
  10. SULPIRIDE [Concomitant]
     Dosage: 500 MG, BID
     Route: 048
  11. ZOPICLONE [Concomitant]
     Dosage: 3.75 MG, QD
     Route: 048

REACTIONS (8)
  - ABDOMINAL COMPARTMENT SYNDROME [None]
  - ABDOMINAL DISTENSION [None]
  - FAECALOMA [None]
  - INTESTINAL DILATATION [None]
  - INTESTINAL INFARCTION [None]
  - INTESTINAL ISCHAEMIA [None]
  - INTRA-ABDOMINAL PRESSURE INCREASED [None]
  - MESENTERIC ARTERY THROMBOSIS [None]
